FAERS Safety Report 8932452 (Version 1)
Quarter: 2012Q4

REPORT INFORMATION
  Report Type: 
  Country: FI (occurrence: FI)
  Receive Date: 20121128
  Receipt Date: 20121128
  Transmission Date: 20130627
  Serious: Yes (Other)
  Sender: FDA-Public Use
  Company Number: FI-ELI_LILLY_AND_COMPANY-FI201211005444

PATIENT
  Sex: Female

DRUGS (14)
  1. FORSTEO [Suspect]
     Indication: OSTEOPOROSIS
     Dosage: 20 ug, qd
     Route: 065
     Dates: start: 20110228
  2. PREDNISOLON [Concomitant]
     Indication: RHEUMATIC DISORDER
     Dosage: 5 mg, qd
     Route: 065
  3. OXIKLORIN [Concomitant]
     Indication: RHEUMATIC DISORDER
     Dosage: UNK, unknown
     Route: 065
  4. LYRICA [Concomitant]
     Indication: PAIN
     Dosage: UNK, unknown
     Route: 065
  5. PANACOD [Concomitant]
     Indication: PAIN
     Dosage: UNK, prn
     Route: 065
  6. BURANA [Concomitant]
     Indication: PAIN
     Dosage: UNK, prn
     Route: 065
  7. ZOLT [Concomitant]
     Indication: GASTROINTESTINAL DISORDER
     Dosage: UNK, unknown
     Route: 065
  8. CALCICHEW-D3 [Concomitant]
     Indication: MEDICAL DIET
     Dosage: UNK, unknown
     Route: 065
  9. DUACT [Concomitant]
     Indication: RHINITIS
     Dosage: UNK, unknown
     Route: 065
  10. DIASECTRAL [Concomitant]
     Indication: CARDIAC DISORDER
     Dosage: UNK, unknown
     Route: 065
  11. MINISUN [Concomitant]
     Indication: VITAMIN SUPPLEMENTATION
     Dosage: UNK, unknown
     Route: 065
  12. VAGIFEM [Concomitant]
     Indication: MENOPAUSE
     Dosage: UNK, unknown
     Route: 065
  13. STILNOCT [Concomitant]
     Indication: SLEEP DISORDER
     Dosage: UNK, unknown
     Route: 065
  14. NASONEX [Concomitant]
     Indication: RHINITIS ALLERGIC
     Dosage: UNK, unknown
     Route: 065

REACTIONS (2)
  - Arrhythmia [Not Recovered/Not Resolved]
  - Muscle spasms [Not Recovered/Not Resolved]
